FAERS Safety Report 4404773-3 (Version None)
Quarter: 2004Q3

REPORT INFORMATION
  Report Type: 
  Country: None (occurrence: None)
  Receive Date: 20040720
  Receipt Date: 20040701
  Transmission Date: 20050211
  Serious: Yes (Life-Threatening)
  Sender: FDA-Public Use
  Company Number: 6009222

PATIENT
  Age: 86 Year
  Sex: Female

DRUGS (7)
  1. MAITATE (BISPROLOL FUMARATE) [Suspect]
     Indication: HYPERTENSION
     Dosage: SEE IMAGE
     Route: 048
     Dates: start: 20030301, end: 20040421
  2. MAITATE (BISPROLOL FUMARATE) [Suspect]
     Indication: HYPERTENSION
     Dosage: SEE IMAGE
     Route: 048
     Dates: start: 20040422, end: 20040426
  3. EXCELASE (ENZYMES NOS) [Concomitant]
  4. BENET (RISEDRONATE SODIUM) [Concomitant]
  5. DEPAS (ETIZOLAM) [Concomitant]
  6. BLOPRESS (CANDESARTAN CILEXETIL) [Concomitant]
  7. LANDEL 10/20 (EPONIDIPINE HYDROCHLORIDE) [Concomitant]

REACTIONS (15)
  - ADAMS-STOKES SYNDROME [None]
  - BLOOD PRESSURE IMMEASURABLE [None]
  - BRADYCARDIA [None]
  - CARDIAC FAILURE [None]
  - CIRCULATORY COLLAPSE [None]
  - DEPRESSED LEVEL OF CONSCIOUSNESS [None]
  - FALL [None]
  - HYPERTENSION [None]
  - LUNG INFILTRATION [None]
  - OSTEOPOROSIS [None]
  - PSYCHOSOMATIC DISEASE [None]
  - PULSE ABSENT [None]
  - RESPIRATORY FAILURE [None]
  - SICK SINUS SYNDROME [None]
  - VOMITING [None]
